FAERS Safety Report 7477925-6 (Version None)
Quarter: 2011Q2

REPORT INFORMATION
  Report Type: 
  Country: None (occurrence: None)
  Receive Date: 20110513
  Receipt Date: 20110428
  Transmission Date: 20111010
  Serious: Yes (Death, Other)
  Sender: FDA-Public Use
  Company Number: US-BAYER-200934391NA

PATIENT
  Age: 67 Year
  Sex: Male
  Weight: 75 kg

DRUGS (21)
  1. TRASYLOL [Suspect]
     Indication: CORONARY ARTERY BYPASS
     Dosage: 200CC TRASYLOL PUMP PRIME
     Route: 042
     Dates: start: 19990329, end: 19990329
  2. VANCOMYCIN [Concomitant]
     Dosage: UNK
     Dates: start: 19990401
  3. CALCIUM CHLORIDE ANHYDROUS [Concomitant]
     Indication: PRODUCT USED FOR UNKNOWN INDICATION
     Dosage: UNK
     Route: 042
     Dates: start: 19990329
  4. VERSED [Concomitant]
     Indication: CATHETERISATION CARDIAC
     Dosage: 1 MG, UNK
     Route: 042
     Dates: start: 19990325, end: 19990325
  5. ANCEF [Concomitant]
     Indication: PRODUCT USED FOR UNKNOWN INDICATION
     Dosage: 1 G, UNK
     Route: 042
     Dates: start: 19990329
  6. NIPRIDE [Concomitant]
     Indication: PRODUCT USED FOR UNKNOWN INDICATION
     Dosage: UNK
     Route: 042
     Dates: start: 19990329
  7. SODIUM BICARBONATE [Concomitant]
     Indication: PRODUCT USED FOR UNKNOWN INDICATION
     Dosage: UNK
     Route: 042
     Dates: start: 19990329
  8. TRASYLOL [Suspect]
  9. LACTATED RINGER'S [Concomitant]
     Indication: PRODUCT USED FOR UNKNOWN INDICATION
     Dosage: UNK
     Route: 042
     Dates: start: 19990329
  10. LIDOCAINE [Concomitant]
     Indication: PRODUCT USED FOR UNKNOWN INDICATION
     Dosage: 100 MG, UNK
     Route: 042
     Dates: start: 19990329
  11. PROTAMINE SULFATE [Concomitant]
     Indication: PRODUCT USED FOR UNKNOWN INDICATION
     Dosage: UNK
     Route: 042
     Dates: start: 19990329
  12. DEXTROSE [Concomitant]
     Indication: PRODUCT USED FOR UNKNOWN INDICATION
     Dosage: UNK
     Route: 042
     Dates: start: 19990329
  13. TRASYLOL [Suspect]
     Dosage: 50CC/HOUR INFUSION
     Route: 042
     Dates: start: 19990329, end: 19990329
  14. NITROGLYCERIN [Concomitant]
     Dosage: 0.4 MG, UNK
     Route: 060
     Dates: start: 19990325
  15. LEVAQUIN [Concomitant]
     Indication: PRODUCT USED FOR UNKNOWN INDICATION
     Dosage: UNK
     Dates: start: 19990401
  16. CARDIZEM [Concomitant]
     Indication: PRODUCT USED FOR UNKNOWN INDICATION
     Dosage: 180 MG, QD
     Route: 048
  17. ESMOLOL [Concomitant]
  18. NITROGLYCERIN [Concomitant]
     Indication: CHEST PAIN
     Dosage: 40-50MCG/MIN
     Route: 042
     Dates: start: 19990325
  19. HEPARIN [Concomitant]
     Indication: PRODUCT USED FOR UNKNOWN INDICATION
     Dosage: UNK
     Route: 042
     Dates: start: 19990326
  20. SOLU-MEDROL [Concomitant]
     Indication: PRODUCT USED FOR UNKNOWN INDICATION
     Dosage: 1 G, UNK
     Route: 042
     Dates: start: 19990329
  21. MORPHINE [Concomitant]

REACTIONS (14)
  - DEATH [None]
  - MULTI-ORGAN FAILURE [None]
  - DISABILITY [None]
  - RENAL FAILURE [None]
  - EMOTIONAL DISTRESS [None]
  - DEPRESSION [None]
  - RENAL INJURY [None]
  - UNEVALUABLE EVENT [None]
  - NERVOUSNESS [None]
  - FEAR [None]
  - INJURY [None]
  - PAIN [None]
  - ANXIETY [None]
  - ANHEDONIA [None]
